FAERS Safety Report 22180943 (Version 1)
Quarter: 2023Q2

REPORT INFORMATION
  Report Type: Spontaneous
  Country: US (occurrence: US)
  Receive Date: 20230406
  Receipt Date: 20230406
  Transmission Date: 20230721
  Serious: No
  Sender: FDA-Public Use
  Company Number: US-009507513-2304USA000722

PATIENT
  Age: 61 Year
  Sex: Female

DRUGS (2)
  1. CUBICIN [Suspect]
     Active Substance: DAPTOMYCIN
     Indication: Staphylococcal infection
  2. CUBICIN [Suspect]
     Active Substance: DAPTOMYCIN
     Indication: Myositis

REACTIONS (1)
  - Product use in unapproved indication [Unknown]
